FAERS Safety Report 8932000 (Version 3)
Quarter: 2013Q1

REPORT INFORMATION
  Report Type: Spontaneous
  Country: US (occurrence: US)
  Receive Date: 20121128
  Receipt Date: 20130125
  Transmission Date: 20140127
  Serious: Yes (Other)
  Sender: FDA-Public Use
  Company Number: US-JNJFOC-20121110942

PATIENT
  Age: 28 Year
  Sex: Female

DRUGS (7)
  1. REMICADE [Suspect]
     Indication: PRODUCT USED FOR UNKNOWN INDICATION
     Dosage: 3RD INFUSION
     Route: 042
  2. REMICADE [Suspect]
     Indication: PRODUCT USED FOR UNKNOWN INDICATION
     Route: 042
  3. CLARITIN [Suspect]
     Indication: PREMEDICATION
     Route: 065
  4. TYLENOL [Suspect]
     Route: 065
  5. TYLENOL [Suspect]
     Indication: PREMEDICATION
     Route: 065
  6. PEPCID [Concomitant]
     Indication: PREMEDICATION
     Route: 065
  7. STEROIDS [Concomitant]
     Indication: PREMEDICATION
     Route: 048

REACTIONS (5)
  - Infusion related reaction [Unknown]
  - Chest discomfort [Unknown]
  - Chills [Unknown]
  - Dyspnoea [Unknown]
  - Unevaluable event [Unknown]
